FAERS Safety Report 11728534 (Version 1)
Quarter: 2015Q4

REPORT INFORMATION
  Report Type: Spontaneous
  Country: US (occurrence: US)
  Receive Date: 20151110
  Receipt Date: 20151110
  Transmission Date: 20160304
  Serious: No
  Sender: FDA-Public Use
  Company Number: US-ELI_LILLY_AND_COMPANY-US201112001386

PATIENT
  Age: 40 Year
  Sex: Female

DRUGS (2)
  1. CALCIUM [Concomitant]
     Active Substance: CALCIUM
  2. FORTEO [Suspect]
     Active Substance: TERIPARATIDE
     Indication: OSTEOPOROSIS
     Dosage: 20 UG, QD
     Route: 065
     Dates: start: 20111110

REACTIONS (4)
  - Fear [Recovered/Resolved]
  - Blood pressure increased [Recovered/Resolved]
  - Anxiety [Not Recovered/Not Resolved]
  - Drug dose omission [Unknown]

NARRATIVE: CASE EVENT DATE: 20111130
